FAERS Safety Report 19163582 (Version 2)
Quarter: 2021Q2

REPORT INFORMATION
  Report Type: Other
  Country: US (occurrence: US)
  Receive Date: 20210421
  Receipt Date: 20210608
  Transmission Date: 20210717
  Serious: No
  Sender: FDA-Public Use
  Company Number: US-ROCHE-2814475

PATIENT
  Sex: Male

DRUGS (2)
  1. OCREVUS [Suspect]
     Active Substance: OCRELIZUMAB
     Dosage: ADMINISTER 600MG IV Q6 MONTHS
     Route: 042
     Dates: start: 20200204
  2. OCREVUS [Suspect]
     Active Substance: OCRELIZUMAB
     Indication: RELAPSING MULTIPLE SCLEROSIS
     Dosage: INFUSE 300 MG DAY 1 THEN 300MG IV DAY 15
     Route: 042
     Dates: start: 20200204

REACTIONS (2)
  - COVID-19 [Not Recovered/Not Resolved]
  - Gastrointestinal disorder [Recovered/Resolved]
